FAERS Safety Report 13669654 (Version 2)
Quarter: 2017Q3

REPORT INFORMATION
  Report Type: Spontaneous
  Country: DE (occurrence: DE)
  Receive Date: 20170620
  Receipt Date: 20170828
  Transmission Date: 20171127
  Serious: Yes (Other)
  Sender: FDA-Public Use
  Company Number: DE-AMGEN-DEUSP2017091345

PATIENT
  Sex: Male

DRUGS (5)
  1. IMLYGIC [Suspect]
     Active Substance: TALIMOGENE LAHERPAREPVEC
     Dosage: 4 ML (10^6), UNK
     Route: 065
     Dates: start: 20161128, end: 20170109
  2. IMLYGIC [Suspect]
     Active Substance: TALIMOGENE LAHERPAREPVEC
     Dosage: 4 ML (10^6), UNK
     Route: 065
     Dates: start: 20161114, end: 20161114
  3. IMLYGIC [Suspect]
     Active Substance: TALIMOGENE LAHERPAREPVEC
     Dosage: 4 ML (10^6), UNK
     Route: 065
     Dates: start: 20170123, end: 20170413
  4. IMLYGIC [Suspect]
     Active Substance: TALIMOGENE LAHERPAREPVEC
     Dosage: 4 ML (10^6), UNK
     Route: 065
     Dates: start: 20161031, end: 20161031
  5. IMLYGIC [Suspect]
     Active Substance: TALIMOGENE LAHERPAREPVEC
     Indication: MALIGNANT MELANOMA STAGE III
     Dosage: 4 ML (10^6), UNK
     Route: 065
     Dates: start: 20161010, end: 20161010

REACTIONS (2)
  - Drug ineffective [Unknown]
  - Metastases to gallbladder [Unknown]

NARRATIVE: CASE EVENT DATE: 201704
